FAERS Safety Report 15312535 (Version 1)
Quarter: 2018Q3

REPORT INFORMATION
  Report Type: Spontaneous
  Country: US (occurrence: US)
  Receive Date: 20180823
  Receipt Date: 20180823
  Transmission Date: 20181010
  Serious: No
  Sender: FDA-Public Use
  Company Number: US-SA-2018SA231280

PATIENT
  Age: 67 Year
  Sex: Female

DRUGS (2)
  1. PRALUENT [Suspect]
     Active Substance: ALIROCUMAB
     Indication: PRODUCT USE IN UNAPPROVED INDICATION
     Dosage: 75 MG, QOW
     Route: 058
     Dates: start: 20170121
  2. PRALUENT [Suspect]
     Active Substance: ALIROCUMAB
     Indication: PRODUCT USE IN UNAPPROVED INDICATION
     Dosage: 75 MG, QOW
     Route: 058
     Dates: start: 20170121

REACTIONS (2)
  - Myalgia [Unknown]
  - Muscular weakness [Unknown]
